FAERS Safety Report 9168253 (Version 1)
Quarter: 2013Q1

REPORT INFORMATION
  Report Type: Spontaneous
  Country: US (occurrence: None)
  Receive Date: 20130313
  Receipt Date: 20130313
  Transmission Date: 20140127
  Serious: Yes (Hospitalization)
  Sender: FDA-Public Use
  Company Number: None

PATIENT
  Age: 6 Year
  Sex: Male
  Weight: 23.7 kg

DRUGS (1)
  1. BUSPIRONE [Suspect]
     Indication: AUTISM

REACTIONS (2)
  - Convulsion [None]
  - Pneumonia [None]
